FAERS Safety Report 5389362-9 (Version None)
Quarter: 2007Q3

REPORT INFORMATION
  Report Type: 
  Country: None (occurrence: None)
  Receive Date: 20070713
  Receipt Date: 20070713
  Transmission Date: 20080115
  Serious: No
  Sender: FDA-Public Use
  Company Number: None

PATIENT

DRUGS (1)
  1. OMACOR [Suspect]
     Dosage: 4 X 1 GRAM CAPSULE EACH MORNING
     Route: 048
     Dates: start: 20070101, end: 20070517

REACTIONS (4)
  - EYE IRRITATION [None]
  - EYE PAIN [None]
  - OCULAR HYPERAEMIA [None]
  - PHOTOPHOBIA [None]
